FAERS Safety Report 10207898 (Version 1)
Quarter: 2014Q2

REPORT INFORMATION
  Report Type: Spontaneous
  Country: US (occurrence: None)
  Receive Date: 20140528
  Receipt Date: 20140528
  Transmission Date: 20141212
  Serious: Yes (Other)
  Sender: FDA-Public Use
  Company Number: None

PATIENT
  Age: 48 Year
  Sex: Female

DRUGS (3)
  1. AFINITOR 10MG NOVARTIS [Suspect]
     Indication: MALIGNANT NIPPLE NEOPLASM FEMALE
     Route: 048
     Dates: start: 20140311
  2. AFINITOR 10MG NOVARTIS [Suspect]
     Indication: METASTATIC NEOPLASM
     Route: 048
     Dates: start: 20140311
  3. AFINITOR 10MG NOVARTIS [Suspect]
     Indication: BREAST CANCER FEMALE
     Route: 048
     Dates: start: 20140311

REACTIONS (2)
  - Stomatitis [None]
  - Skin disorder [None]
